FAERS Safety Report 16144084 (Version 1)
Quarter: 2019Q1

REPORT INFORMATION
  Report Type: Spontaneous
  Country: US (occurrence: US)
  Receive Date: 20190226
  Receipt Date: 20190226
  Transmission Date: 20190418
  Serious: Yes (Hospitalization, Other)
  Sender: FDA-Public Use
  Company Number: None

PATIENT
  Age: 82 Year
  Sex: Female
  Weight: 68.04 kg

DRUGS (7)
  1. BAYER [Concomitant]
     Active Substance: ASPIRIN
  2. VITIMIN D3 [Concomitant]
  3. MAITAKE D FRACTION STANDARD [Concomitant]
  4. IRBESARTAN TABLETS 300MG [Suspect]
     Active Substance: IRBESARTAN
     Indication: HYPERTENSION
     Dosage: ?          QUANTITY:1 DF DOSAGE FORM;?
     Route: 048
     Dates: end: 201901
  5. LEVOLHYROXINE [Concomitant]
  6. VITIMIN C [Concomitant]
  7. AMLODIPINE BESYLATE. [Concomitant]
     Active Substance: AMLODIPINE BESYLATE

REACTIONS (4)
  - Hypertension [None]
  - Asthenia [None]
  - Feeling abnormal [None]
  - Fall [None]

NARRATIVE: CASE EVENT DATE: 20180325
